FAERS Safety Report 8358481-7 (Version None)
Quarter: 2012Q2

REPORT INFORMATION
  Report Type: 
  Country: None (occurrence: None)
  Receive Date: 20120514
  Receipt Date: 20120507
  Transmission Date: 20120825
  Serious: Yes (Hospitalization)
  Sender: FDA-Public Use
  Company Number: US-BAYER-2011-070935

PATIENT
  Age: 31 Year
  Sex: Female
  Weight: 63.492 kg

DRUGS (6)
  1. YAZ [Suspect]
     Indication: ACNE
     Dosage: UNK
     Dates: start: 20070101, end: 20100101
  2. YAZ [Suspect]
     Indication: PREMENSTRUAL SYNDROME
  3. ULTRAM [Concomitant]
     Dosage: 50 MG
  4. YAZ [Suspect]
  5. PEPCID [Concomitant]
  6. YAZ [Suspect]
     Indication: CONTRACEPTION

REACTIONS (8)
  - VOMITING [None]
  - PAIN [None]
  - CHEST PAIN [None]
  - INJURY [None]
  - ABDOMINAL DISCOMFORT [None]
  - GALLBLADDER INJURY [None]
  - CHOLECYSTITIS ACUTE [None]
  - GASTROOESOPHAGEAL REFLUX DISEASE [None]
